FAERS Safety Report 10033072 (Version 1)
Quarter: 2014Q1

REPORT INFORMATION
  Report Type: Spontaneous
  Country: DE (occurrence: DE)
  Receive Date: 20140324
  Receipt Date: 20140324
  Transmission Date: 20141002
  Serious: Yes (Other)
  Sender: FDA-Public Use
  Company Number: CHNY2014DE000888

PATIENT
  Sex: Female

DRUGS (2)
  1. SCOPODERM TTS [Suspect]
     Dosage: UNK
     Route: 062
  2. MUSCLE RELAXANTS [Concomitant]

REACTIONS (3)
  - Movement disorder [Unknown]
  - Cardiovascular disorder [Unknown]
  - Blood pressure decreased [Unknown]
